FAERS Safety Report 8809631 (Version 1)
Quarter: 2012Q4

REPORT INFORMATION
  Report Type: 
  Country: US (occurrence: US)
  Receive Date: 20120926
  Receipt Date: 20120926
  Transmission Date: 20130627
  Serious: Yes (Other)
  Sender: FDA-Public Use
  Company Number: US-ROCHE-1128134

PATIENT
  Age: 35 Year
  Sex: Female

DRUGS (3)
  1. AVASTIN [Suspect]
     Indication: BREAST CANCER FEMALE
     Route: 065
  2. AVASTIN [Suspect]
     Indication: LUNG NEOPLASM MALIGNANT
  3. SUTENT [Concomitant]

REACTIONS (3)
  - Pulmonary mass [Unknown]
  - Lung disorder [Unknown]
  - Metastases to breast [Unknown]
